FAERS Safety Report 6306122-2 (Version None)
Quarter: 2009Q3

REPORT INFORMATION
  Report Type: 
  Country: None (occurrence: None)
  Receive Date: 20090810
  Receipt Date: 20090810
  Transmission Date: 20100115
  Serious: No
  Sender: FDA-Public Use
  Company Number: None

PATIENT

DRUGS (1)
  1. SEPTOCAINE [Suspect]

REACTIONS (4)
  - CONTUSION [None]
  - PAIN [None]
  - SWELLING [None]
  - SWELLING FACE [None]
